FAERS Safety Report 16043038 (Version 1)
Quarter: 2019Q1

REPORT INFORMATION
  Report Type: Spontaneous
  Country: AU (occurrence: AU)
  Receive Date: 20190306
  Receipt Date: 20190306
  Transmission Date: 20190418
  Serious: Yes (Hospitalization, Other)
  Sender: FDA-Public Use
  Company Number: AU-SA-2019SA055177

PATIENT
  Age: 59 Year
  Sex: Female

DRUGS (2)
  1. LANTUS [Suspect]
     Active Substance: INSULIN GLARGINE
     Dosage: 25 U, UNK
  2. INSULIN ASPART [Suspect]
     Active Substance: INSULIN ASPART
     Dosage: 5?10 UNITS, TID

REACTIONS (7)
  - Blood glucose increased [Unknown]
  - Hypoglycaemia [Recovered/Resolved]
  - Diabetic ketoacidosis [Unknown]
  - Addison^s disease [Unknown]
  - Cortisol decreased [Unknown]
  - Blood glucose fluctuation [Unknown]
  - Glycosylated haemoglobin increased [Unknown]
